FAERS Safety Report 16903743 (Version 1)
Quarter: 2019Q4

REPORT INFORMATION
  Report Type: Spontaneous
  Country: US (occurrence: US)
  Receive Date: 20190819
  Receipt Date: 20190819
  Transmission Date: 20200122
  Serious: Yes (Hospitalization)
  Sender: FDA-Public Use
  Company Number: None

PATIENT
  Sex: Male

DRUGS (1)
  1. ZYTIGA [Suspect]
     Active Substance: ABIRATERONE ACETATE
     Indication: CROHN^S DISEASE
     Dates: start: 201804, end: 201904

REACTIONS (4)
  - Chest discomfort [None]
  - Rash [None]
  - Urticaria [None]
  - Dyspnoea [None]
